FAERS Safety Report 10779720 (Version 3)
Quarter: 2016Q1

REPORT INFORMATION
  Report Type: Spontaneous
  Country: US (occurrence: US)
  Receive Date: 20150210
  Receipt Date: 20160215
  Transmission Date: 20160525
  Serious: Yes (Other)
  Sender: FDA-Public Use
  Company Number: US-PFIZER INC-2015053831

PATIENT
  Age: 60 Year
  Sex: Female
  Weight: 68.27 kg

DRUGS (18)
  1. LYRICA [Suspect]
     Active Substance: PREGABALIN
     Indication: FIBROMYALGIA
     Dosage: UNK, 3X/DAY
  2. LYRICA [Suspect]
     Active Substance: PREGABALIN
     Indication: NERVE INJURY
     Dosage: 75 MG, (1 IN MORNING AND 2 AT BED TIME)
     Route: 048
  3. ZANTAC [Concomitant]
     Active Substance: RANITIDINE HYDROCHLORIDE
     Dosage: 300 MG, DAILY
     Route: 048
     Dates: start: 20160114
  4. PROMETHAZINE HCL [Concomitant]
     Active Substance: PROMETHAZINE HYDROCHLORIDE
     Indication: NAUSEA
     Dosage: 25 MG, AS NEEDED (EVERY 6 HOURS AS NEEDED)
     Route: 048
     Dates: start: 20160114
  5. REQUIP [Concomitant]
     Active Substance: ROPINIROLE HYDROCHLORIDE
     Dosage: 0.5 MG, 1X/DAY (AT BEDTIME)
     Route: 048
     Dates: start: 20130314
  6. LYRICA [Suspect]
     Active Substance: PREGABALIN
     Indication: RHEUMATOID ARTHRITIS
     Dosage: 75 MG, 3X/DAY (1 PO QAM, 1 PO Q LUNCH AND 1 PO QHS)
     Route: 048
  7. LOMOTIL [Concomitant]
     Active Substance: ATROPINE SULFATE\DIPHENOXYLATE HYDROCHLORIDE
     Dosage: TAKE 2 TABS AFTER FIRST LOOSE STOOL/1 AFTER EACH LOSE STOOL/DIPHENOXYLATE:2.5MG;ATROPINE:0.025MG
     Route: 048
     Dates: start: 20150915
  8. MECLIZINE HCL [Concomitant]
     Indication: DIZZINESS
     Dosage: 25 MG, AS NEEDED (3 TIMES DAILY AS NEEDED)
     Route: 048
     Dates: start: 20120110
  9. OXYCODONE AND ACETAMINOPHEN [Concomitant]
     Active Substance: ACETAMINOPHEN\OXYCODONE HYDROCHLORIDE
     Indication: PAIN
     Dosage: 1 DF, AS NEEDED (OXYCODONE: 7.5MG; ACETAMINOPHEN: 325MG/EVERY 4 HOURS PRN)
     Route: 048
     Dates: start: 20150818
  10. XYZAL [Concomitant]
     Active Substance: LEVOCETIRIZINE DIHYDROCHLORIDE
     Dosage: 5 MG, 1X/DAY (BEDTIME)
     Route: 048
     Dates: start: 20150305
  11. LYRICA [Suspect]
     Active Substance: PREGABALIN
     Dosage: 75 MG (1 CAPSULE IN THE MORNING, 1 CAPSULE AT LUNCH AND 2 CAPSULES IN THE EVENING)
     Route: 048
     Dates: start: 20130326
  12. ATIVAN [Concomitant]
     Active Substance: LORAZEPAM
     Dosage: 0.5 MG, AS NEEDED (3 TIMES DAILY AS NEEDED)
     Route: 048
     Dates: start: 20030611
  13. ALDACTONE [Concomitant]
     Active Substance: SPIRONOLACTONE
     Dosage: 12.5 MG, DAILY
     Route: 048
     Dates: start: 20140220
  14. GLUCOSAMINE [Concomitant]
     Active Substance: GLUCOSAMINE
     Dosage: 2 DF, DAILY
     Route: 048
     Dates: start: 20100209
  15. MONTELUKAST SODIUM. [Concomitant]
     Active Substance: MONTELUKAST SODIUM
     Dosage: 10 MG, 1X/DAY
     Route: 048
     Dates: start: 20140728
  16. OMEPRAZOLE. [Concomitant]
     Active Substance: OMEPRAZOLE
     Dosage: 40 MG, DAILY
     Route: 048
     Dates: start: 20120830
  17. ZOLOFT [Concomitant]
     Active Substance: SERTRALINE HYDROCHLORIDE
     Dosage: 25 MG, 1X/DAY (ONE TIME DAILY)
     Route: 048
     Dates: start: 20100928
  18. ESTRADIOL. [Concomitant]
     Active Substance: ESTRADIOL
     Dosage: 0.5 MG, ALTERNATE DAY (EVERY OTHER DAY)
     Route: 048
     Dates: start: 20100209

REACTIONS (2)
  - Bronchitis [Recovered/Resolved]
  - Rib fracture [Not Recovered/Not Resolved]

NARRATIVE: CASE EVENT DATE: 20150102
